FAERS Safety Report 6614977-7 (Version None)
Quarter: 2010Q1

REPORT INFORMATION
  Report Type: 
  Country: None (occurrence: None)
  Receive Date: 20100305
  Receipt Date: 20100222
  Transmission Date: 20100710
  Serious: Yes (Hospitalization, Other)
  Sender: FDA-Public Use
  Company Number: DE-ELI_LILLY_AND_COMPANY-DE201002006835

PATIENT
  Sex: Female

DRUGS (7)
  1. GEMCITABINE HCL [Suspect]
     Indication: BILE DUCT CANCER
     Dosage: 840 MG, UNKNOWN
     Route: 042
     Dates: start: 20081001
  2. CETUXIMAB [Suspect]
     Indication: BILE DUCT CANCER
     Dosage: 320 MG, UNKNOWN
     Route: 042
     Dates: start: 20081001
  3. OXALIPLATIN [Suspect]
     Indication: BILE DUCT CANCER
     Dosage: 185 MG, UNKNOWN
     Route: 042
     Dates: start: 20081001
  4. RANITIC [Concomitant]
  5. DEXAMETHASONE 4MG TAB [Concomitant]
     Dosage: 8 MG, UNKNOWN
  6. KEVATRIL [Concomitant]
     Dosage: 2 MG, UNKNOWN
  7. CLEMASTINE FUMARATE [Concomitant]

REACTIONS (3)
  - DIARRHOEA [None]
  - INFECTION [None]
  - PYREXIA [None]
